FAERS Safety Report 4701495-6 (Version None)
Quarter: 2005Q2

REPORT INFORMATION
  Report Type: 
  Country: None (occurrence: None)
  Receive Date: 20050628
  Receipt Date: 20050621
  Transmission Date: 20051028
  Serious: Yes (Other)
  Sender: FDA-Public Use
  Company Number: US-KINGPHARMUSA00001-K200500870

PATIENT
  Age: 62 Year
  Sex: Male
  Weight: 102 kg

DRUGS (9)
  1. ALTACE [Suspect]
     Indication: CARDIAC DISORDER
     Dosage: 10 MG, QD
     Route: 048
     Dates: start: 20010101
  2. ALTACE [Suspect]
     Dosage: 5 MG, QD
     Route: 048
     Dates: end: 20050611
  3. LASIX [Suspect]
     Indication: CARDIAC FAILURE CONGESTIVE
     Dosage: UNK, PRN
     Route: 048
  4. POTASSIUM CHLORIDE [Suspect]
     Indication: MINERAL SUPPLEMENTATION
     Dosage: UNK, PRN
     Route: 048
  5. AMIODARONE [Concomitant]
     Indication: ARRHYTHMIA
     Route: 048
  6. ACTOS  /CAN/ [Concomitant]
     Indication: DIABETES MELLITUS
     Route: 048
  7. LEVOXYL [Concomitant]
     Indication: HYPOTHYROIDISM
     Route: 048
  8. VICODIN [Concomitant]
     Indication: PAIN
     Route: 048
  9. VALIUM [Concomitant]
     Indication: PAIN
     Route: 048

REACTIONS (17)
  - ANGLE CLOSURE GLAUCOMA [None]
  - ARRHYTHMIA [None]
  - ASTHENIA [None]
  - DECREASED APPETITE [None]
  - DEPRESSION [None]
  - DIZZINESS [None]
  - DRUG INTERACTION [None]
  - DRUG INTERACTION POTENTIATION [None]
  - DYSGEUSIA [None]
  - FLUID RETENTION [None]
  - HYPERHIDROSIS [None]
  - HYPOTENSION [None]
  - NAUSEA [None]
  - PARAESTHESIA [None]
  - PHOTOSENSITIVITY REACTION [None]
  - TINNITUS [None]
  - VISUAL ACUITY REDUCED [None]
